FAERS Safety Report 10129749 (Version 2)
Quarter: 2014Q2

REPORT INFORMATION
  Report Type: Spontaneous
  Country: CN (occurrence: CN)
  Receive Date: 20140428
  Receipt Date: 20140516
  Transmission Date: 20141212
  Serious: Yes (Hospitalization, Other)
  Sender: FDA-Public Use
  Company Number: CN-JNJFOC-20140410236

PATIENT
  Age: 36 Year
  Sex: Female
  Weight: 58 kg

DRUGS (2)
  1. TYLENOL [Suspect]
     Indication: PYREXIA
     Route: 048
     Dates: start: 20121226, end: 20121229
  2. CRAVIT [Suspect]
     Indication: PYREXIA
     Route: 065
     Dates: start: 20121226, end: 20121229

REACTIONS (1)
  - Drug-induced liver injury [Recovering/Resolving]
